FAERS Safety Report 9511197 (Version 4)
Quarter: 2014Q1

REPORT INFORMATION
  Report Type: Report from Study
  Country: FR (occurrence: FR)
  Receive Date: 20130910
  Receipt Date: 20140213
  Transmission Date: 20141002
  Serious: Yes (Death)
  Sender: FDA-Public Use
  Company Number: FR-CELGENEUS-056-C4047-13090914

PATIENT
  Age: 67 Year
  Sex: Female

DRUGS (9)
  1. CC-4047 [Suspect]
     Indication: PLASMA CELL MYELOMA
     Dosage: 4 MILLIGRAM
     Route: 048
     Dates: start: 20130614
  2. CC-4047 [Suspect]
     Dosage: 4 MILLIGRAM
     Route: 048
     Dates: start: 20130718, end: 20130728
  3. DEXAMETHASONE [Concomitant]
     Indication: PLASMA CELL MYELOMA
     Route: 065
     Dates: start: 20120913, end: 20120916
  4. DEXAMETHASONE [Concomitant]
     Route: 065
     Dates: start: 20120917, end: 20121009
  5. DEXAMETHASONE [Concomitant]
     Route: 065
     Dates: start: 20121030, end: 20121120
  6. DEXAMETHASONE [Concomitant]
     Route: 065
     Dates: start: 20130115, end: 20130205
  7. DEXAMETHASONE [Concomitant]
     Route: 065
     Dates: start: 20130508
  8. DEXAMETHASONE [Concomitant]
     Dosage: 40 MILLIGRAM
     Route: 065
     Dates: start: 20130614
  9. CALCIPARIN [Concomitant]
     Indication: THROMBOSIS PROPHYLAXIS
     Dosage: 0.2 X 2
     Route: 065

REACTIONS (2)
  - Plasma cell myeloma [Fatal]
  - No therapeutic response [Unknown]
